FAERS Safety Report 12237146 (Version 2)
Quarter: 2016Q2

REPORT INFORMATION
  Report Type: Spontaneous
  Country: JP (occurrence: JP)
  Receive Date: 20160405
  Receipt Date: 20160415
  Transmission Date: 20160815
  Serious: Yes (Death, Other)
  Sender: FDA-Public Use
  Company Number: JP-ROCHE-1736923

PATIENT
  Age: 89 Year
  Sex: Female
  Weight: 39 kg

DRUGS (9)
  1. ACTEMRA [Suspect]
     Active Substance: TOCILIZUMAB
     Indication: RHEUMATOID ARTHRITIS
     Route: 041
     Dates: start: 20110311, end: 20160213
  2. GLACTIV [Concomitant]
     Active Substance: SITAGLIPTIN
     Indication: RHEUMATOID ARTHRITIS
     Dosage: AMOUNT OF 1 ONCE ADMINISTRATION: 50 (UNIT UNCERTAINTY)
     Route: 048
     Dates: start: 201602, end: 201603
  3. AMARYL [Concomitant]
     Active Substance: GLIMEPIRIDE
     Indication: RHEUMATOID ARTHRITIS
     Dosage: AMOUNT OF 1 ONCE ADMINISTRATION: 1 (UNIT UNCERTAINTY)
     Route: 048
     Dates: start: 201602, end: 201603
  4. ENDOXAN [Concomitant]
     Active Substance: CYCLOPHOSPHAMIDE
     Indication: RHEUMATOID VASCULITIS
     Dosage: THE FRACTIONATION DOSE FREQUENCY IS UNCERTAIN. ?DOSE INTERVAL UNCERTAINTY
     Route: 065
     Dates: start: 20110305, end: 20110407
  5. DEPAS [Concomitant]
     Active Substance: ETIZOLAM
     Indication: RHEUMATOID ARTHRITIS
     Dosage: AMOUNT OF 1 ONCE ADMINISTRATION: 0.5 (UNIT UNCERTAINTY)
     Route: 048
     Dates: start: 201109, end: 201602
  6. THYRADIN-S [Concomitant]
     Active Substance: LEVOTHYROXINE
     Indication: RHEUMATOID ARTHRITIS
     Route: 048
     Dates: start: 201111, end: 201602
  7. PREDONINE [Concomitant]
     Active Substance: PREDNISOLONE\PREDNISOLONE ACETATE\PREDNISOLONE SODIUM SUCCINATE
     Dosage: THE FRACTIONATION DOSE FREQUENCY IS UNCERTAIN. ?DOSE INTERVAL UNCERTAINTY
     Route: 065
  8. EDIROL [Concomitant]
     Active Substance: ELDECALCITOL
     Route: 048
     Dates: start: 201201, end: 201602
  9. BONVIVA [Concomitant]
     Active Substance: IBANDRONATE SODIUM
     Route: 042
     Dates: start: 2015, end: 201602

REACTIONS (2)
  - Small intestinal perforation [Fatal]
  - Disseminated intravascular coagulation [Unknown]

NARRATIVE: CASE EVENT DATE: 20160318
